FAERS Safety Report 5406227-4 (Version None)
Quarter: 2007Q3

REPORT INFORMATION
  Report Type: 
  Country: None (occurrence: None)
  Receive Date: 20070802
  Receipt Date: 20070802
  Transmission Date: 20080115
  Serious: Yes (Other)
  Sender: FDA-Public Use
  Company Number: None

PATIENT
  Sex: Female

DRUGS (2)
  1. REBIF [Suspect]
     Indication: MULTIPLE SCLEROSIS
     Dosage: INJECT REBIF 0.2ML 3 TIMES A WEEK/2WK SQ
     Route: 058
     Dates: start: 20070608, end: 20070628
  2. REBIF [Suspect]
     Dosage: THEN 0.5ML 3 TIMES A WEEK/2WK SQ
     Route: 058

REACTIONS (5)
  - ANGER [None]
  - CRYING [None]
  - DEPRESSION [None]
  - MOOD SWINGS [None]
  - SUICIDAL IDEATION [None]
